FAERS Safety Report 5249342-0 (Version None)
Quarter: 2007Q1

REPORT INFORMATION
  Report Type: 
  Country: None (occurrence: None)
  Receive Date: 20070223
  Receipt Date: 20070210
  Transmission Date: 20070707
  Serious: Yes (Disabling)
  Sender: FDA-Public Use
  Company Number: 152872ISR

PATIENT
  Age: 29 Year
  Sex: Female

DRUGS (1)
  1. MIRTAZAPINE [Suspect]
     Indication: DEPRESSION
     Dosage: 45 MG (45 MG, 1 IN 1 D)
     Route: 048
     Dates: start: 20061101

REACTIONS (1)
  - RAYNAUD'S PHENOMENON [None]
